FAERS Safety Report 9398807 (Version 1)
Quarter: 2013Q3

REPORT INFORMATION
  Report Type: Spontaneous
  Country: CN (occurrence: CN)
  Receive Date: 20130712
  Receipt Date: 20130712
  Transmission Date: 20140515
  Serious: Yes (Other)
  Sender: FDA-Public Use
  Company Number: CN-BAXTER-2013BAX026611

PATIENT
  Age: 68 Year
  Sex: Female
  Weight: 66 kg

DRUGS (2)
  1. 5% GLUCOSE INJECTION [Suspect]
     Indication: BRONCHITIS
     Route: 041
     Dates: start: 20120605, end: 20120605
  2. LEVOFLOXACIN HYDROCHLORIDE [Suspect]
     Indication: PRODUCT USED FOR UNKNOWN INDICATION
     Dosage: 0.4
     Route: 041
     Dates: start: 20120605, end: 20120605

REACTIONS (2)
  - Chills [Recovered/Resolved]
  - Pyrexia [Recovered/Resolved]
